FAERS Safety Report 8625013-5 (Version None)
Quarter: 2012Q3

REPORT INFORMATION
  Report Type: 
  Country: None (occurrence: None)
  Receive Date: 20120827
  Receipt Date: 20120821
  Transmission Date: 20120928
  Serious: Yes (Life-Threatening, Other)
  Sender: FDA-Public Use
  Company Number: JP-PFIZER INC-2012180754

PATIENT
  Age: 66 Year
  Sex: Male
  Weight: 50 kg

DRUGS (4)
  1. OXYCODONE HYDROCHLORIDE [Concomitant]
     Indication: CANCER PAIN
     Dosage: 2.5 MG, AS NEEDED
     Route: 048
  2. LYRICA [Suspect]
     Indication: NEURALGIA
     Dosage: 50 MG, 2X/DAY (100 MG/DAY)
     Route: 048
     Dates: start: 20120622, end: 20120622
  3. LYRICA [Suspect]
     Dosage: 25 MG, 2X/DAY (50 MG/DAY)
     Dates: start: 20120623, end: 20120628
  4. FENTANYL-100 [Concomitant]
     Indication: CANCER PAIN
     Dosage: 2.1 MG, ONCE PER 3 DAYS
     Route: 062
     Dates: start: 20120614

REACTIONS (2)
  - DYSPHONIA [None]
  - PNEUMONIA ASPIRATION [None]
